FAERS Safety Report 15844995 (Version 1)
Quarter: 2019Q1

REPORT INFORMATION
  Report Type: Spontaneous
  Country: US (occurrence: US)
  Receive Date: 20190119
  Receipt Date: 20190119
  Transmission Date: 20190417
  Serious: No
  Sender: FDA-Public Use
  Company Number: US-JNJFOC-20181233199

PATIENT
  Sex: Female
  Weight: 61.24 kg

DRUGS (3)
  1. TYLENOL [Suspect]
     Active Substance: ACETAMINOPHEN
     Indication: ANALGESIC THERAPY
     Route: 048
  2. TYLENOL [Suspect]
     Active Substance: ACETAMINOPHEN
     Indication: TOOTH EXTRACTION
     Route: 048
  3. LISTERINE ULTRACLEAN ARCTIC MINT [Concomitant]
     Active Substance: EUCALYPTOL\MENTHOL\METHYL SALICYLATE\THYMOL
     Indication: ORAL FUNGAL INFECTION
     Route: 048
     Dates: start: 20131201

REACTIONS (2)
  - Product use in unapproved indication [Unknown]
  - Off label use [Unknown]
